FAERS Safety Report 6026852-X (Version None)
Quarter: 2009Q1

REPORT INFORMATION
  Report Type: 
  Country: None (occurrence: None)
  Receive Date: 20090105
  Receipt Date: 20081229
  Transmission Date: 20090719
  Serious: Yes (Other)
  Sender: FDA-Public Use
  Company Number: US-BAYER-200831606NA

PATIENT
  Sex: Female

DRUGS (1)
  1. MIRENA [Suspect]
     Indication: DRUG USE FOR UNKNOWN INDICATION
     Route: 015
     Dates: start: 20050101, end: 20080101

REACTIONS (5)
  - AFFECT LABILITY [None]
  - ANXIETY [None]
  - IUCD COMPLICATION [None]
  - PROCEDURAL PAIN [None]
  - STRESS [None]
